FAERS Safety Report 8690380 (Version 2)
Quarter: 2013Q1

REPORT INFORMATION
  Report Type: Spontaneous
  Country: US (occurrence: US)
  Receive Date: 20120727
  Receipt Date: 20130111
  Transmission Date: 20140127
  Serious: No
  Sender: FDA-Public Use
  Company Number: US-ASTRAZENECA-2012SE25329

PATIENT
  Age: 29 Year
  Sex: Male

DRUGS (2)
  1. SEROQUEL [Suspect]
     Route: 048
  2. SEROQUEL [Suspect]
     Route: 048

REACTIONS (4)
  - Sleep disorder due to general medical condition, insomnia type [Unknown]
  - Memory impairment [Unknown]
  - Memory impairment [Unknown]
  - Nausea [Unknown]
